FAERS Safety Report 25225090 (Version 6)
Quarter: 2025Q4

REPORT INFORMATION
  Report Type: Spontaneous
  Country: EU (occurrence: EU)
  Receive Date: 20250422
  Receipt Date: 20251218
  Transmission Date: 20260118
  Serious: Yes (Life-Threatening, Hospitalization, Other)
  Sender: AUROBINDO
  Company Number: EU-AUROBINDO-AUR-APL-2025-020925

PATIENT
  Age: 60 Year
  Sex: Male
  Weight: 83 kg

DRUGS (25)
  1. BORTEZOMIB [Suspect]
     Active Substance: BORTEZOMIB
     Indication: Plasma cell myeloma
     Dosage: 1.3MG/M2 (2.73MG), DAY 1, 4, 8, 11
  2. BORTEZOMIB [Suspect]
     Active Substance: BORTEZOMIB
     Dosage: 1.3MG/M2 (2.73MG), CYCLE 2 (DAY 1, 4, 8, 11)
  3. BORTEZOMIB [Suspect]
     Active Substance: BORTEZOMIB
     Dosage: REDUCED DOSE 0.7MG/M2 (1.45MG), CYCLE 4 (DAY 1, 4, 8, 11)
  4. LENALIDOMIDE [Suspect]
     Active Substance: LENALIDOMIDE
     Indication: Plasma cell myeloma
     Dosage: 5 MILLIGRAM, CYCLICAL (5 MG, CYCLIC, +1 TO+15)
     Route: 061
  5. LENALIDOMIDE [Suspect]
     Active Substance: LENALIDOMIDE
     Dosage: 5 MILLIGRAM, CYCLE 4 (DAY 1 TO 15) PO
     Route: 061
  6. DARATUMUMAB [Suspect]
     Active Substance: DARATUMUMAB
     Indication: Plasma cell myeloma
     Dosage: 1800 MILLIGRAM, CYCLE 1 (DAY 1, 8, 15, 22)
  7. DARATUMUMAB [Suspect]
     Active Substance: DARATUMUMAB
     Dosage: 1800 MILLIGRAM, CYCLE 2 (DAY 1, 8, 15)
  8. DARATUMUMAB [Suspect]
     Active Substance: DARATUMUMAB
     Dosage: 1800 MILLIGRAM, CYCLE 3 (DAY 1, 15)
  9. DARATUMUMAB [Suspect]
     Active Substance: DARATUMUMAB
     Dosage: 1800 MILLIGRAM, CYCLE 4 (DAY 1, 15)
  10. DEXAMETHASONE [Suspect]
     Active Substance: DEXAMETHASONE
     Indication: Plasma cell myeloma
     Dosage: 40 MILLIGRAM, CYCLE 1 (DAY 1, TO 4 AND 9 TO 12), PO
     Route: 061
  11. DEXAMETHASONE [Suspect]
     Active Substance: DEXAMETHASONE
     Dosage: 20 MILLIGRAM, CYCLE 2 (DAY 1, TO 4 AND 9 TO 12), PO
     Route: 061
  12. DEXAMETHASONE [Suspect]
     Active Substance: DEXAMETHASONE
     Dosage: 20 MILLIGRAM, CYCLE 3 (DAY 1, TO 4 AND 9 TO 12), PO
     Route: 061
  13. DEXAMETHASONE [Suspect]
     Active Substance: DEXAMETHASONE
     Dosage: 20 MILLIGRAM, CYCLE 4 (DAY 1, TO 4 AND 9 TO 12), PO
     Route: 061
  14. DARATUMUMAB [Concomitant]
     Active Substance: DARATUMUMAB
     Indication: Plasma cell myeloma
     Dosage: 1800 MILLIGRAM, CYCLICAL
  15. DARATUMUMAB [Concomitant]
     Active Substance: DARATUMUMAB
     Dosage: 1800 MILLIGRAM, CYCLICAL ((+1+8+15 -CYCLE 2))
  16. DARATUMUMAB [Concomitant]
     Active Substance: DARATUMUMAB
     Dosage: 1800 MILLIGRAM, CYCLICAL ((+1+8+15 -CYCLE 3))
  17. DARATUMUMAB [Concomitant]
     Active Substance: DARATUMUMAB
     Dosage: 1800 MILLIGRAM, CYCLICAL ((+1+8+15 -CYCLE 4))
  18. LENALIDOMIDE [Concomitant]
     Active Substance: LENALIDOMIDE
     Indication: Plasma cell myeloma
     Dosage: 5 MILLIGRAM, CYCLICAL (+1 TO +21, CYCLE 1)
     Route: 061
  19. LENALIDOMIDE [Concomitant]
     Active Substance: LENALIDOMIDE
     Dosage: 5 MILLIGRAM, CYCLICAL (+1 TO +21, CYCLE 2)
     Route: 061
  20. LENALIDOMIDE [Concomitant]
     Active Substance: LENALIDOMIDE
     Dosage: 5 MILLIGRAM, CYCLICAL  (+1 TO +21, CYCLE 3)
     Route: 061
  21. LENALIDOMIDE [Concomitant]
     Active Substance: LENALIDOMIDE
     Dosage: 5 MILLIGRAM, CYCLICAL  (+1 TO +15, CYCLE 4)
     Route: 061
  22. DEXAMETHASONE [Concomitant]
     Active Substance: DEXAMETHASONE
     Indication: Plasma cell myeloma
     Dosage: 40 MILLIGRAM (+1 TO +4+ AND +9 TO +12, CYCLE 1)
     Route: 061
  23. DEXAMETHASONE [Concomitant]
     Active Substance: DEXAMETHASONE
     Dosage: 20 MILLIGRAM (+1 TO +4 AND +9 TO +12, CYCLE 2)
     Route: 061
  24. DEXAMETHASONE [Concomitant]
     Active Substance: DEXAMETHASONE
     Dosage: 20 MILLIGRAM (+1 TO +4 AND +9 TO +12, CYCLE 3
     Route: 061
  25. DEXAMETHASONE [Concomitant]
     Active Substance: DEXAMETHASONE
     Dosage: 20 MILLIGRAM (+1 TO +4 AND +9 TO +12, CYCLE 4
     Route: 061

REACTIONS (24)
  - Intestinal perforation [Recovered/Resolved]
  - Peritonitis [Unknown]
  - Inflammation [Unknown]
  - Autonomic neuropathy [Recovered/Resolved]
  - Constipation [Recovered/Resolved]
  - Large intestine perforation [Unknown]
  - Diverticulitis [Recovering/Resolving]
  - Ileus paralytic [Recovered/Resolved]
  - Gastrointestinal motility disorder [Recovered/Resolved]
  - Sensory loss [Recovered/Resolved]
  - Abdominal distension [Recovered/Resolved]
  - Abdominal tenderness [Recovered/Resolved]
  - Diverticulum intestinal [Recovered/Resolved]
  - Gastrointestinal sounds abnormal [Recovered/Resolved]
  - Hypophagia [Recovered/Resolved]
  - Pneumoperitoneum [Recovered/Resolved]
  - Gastrointestinal wall thickening [Recovered/Resolved]
  - Focal peritonitis [Recovered/Resolved]
  - Abdominal abscess [Recovered/Resolved]
  - Immunosuppression [Recovered/Resolved]
  - Glomerular filtration rate abnormal [Recovered/Resolved]
  - Intestinal obstruction [Recovered/Resolved]
  - Lymphopenia [Unknown]
  - Neuropathy peripheral [Unknown]

NARRATIVE: CASE EVENT DATE: 20231229
